FAERS Safety Report 19555097 (Version 1)
Quarter: 2021Q3

REPORT INFORMATION
  Report Type: Spontaneous
  Country: US (occurrence: US)
  Receive Date: 20210715
  Receipt Date: 20210715
  Transmission Date: 20211014
  Serious: Yes (Death, Life-Threatening, Hospitalization)
  Sender: FDA-Public Use
  Company Number: US-MYLANLABS-2021M1042229

PATIENT
  Age: 3 Year
  Sex: Female

DRUGS (1)
  1. DIPHENHYDRAMINE. [Suspect]
     Active Substance: DIPHENHYDRAMINE
     Indication: PRODUCT USED FOR UNKNOWN INDICATION
     Dosage: UNK
     Route: 048

REACTIONS (10)
  - Hypoxic-ischaemic encephalopathy [Fatal]
  - Unresponsive to stimuli [Unknown]
  - Brain oedema [Unknown]
  - Mydriasis [Unknown]
  - Aspiration [Unknown]
  - Haemorrhage [Unknown]
  - Toxicity to various agents [Fatal]
  - Accidental poisoning [Fatal]
  - Pulmonary oedema [Unknown]
  - Apnoea [Unknown]
